FAERS Safety Report 11855608 (Version 1)
Quarter: 2015Q4

REPORT INFORMATION
  Report Type: Spontaneous
  Country: US (occurrence: US)
  Receive Date: 20151221
  Receipt Date: 20151221
  Transmission Date: 20160305
  Serious: No
  Sender: FDA-Public Use
  Company Number: US-PERRIGO-15US008165

PATIENT
  Sex: Female

DRUGS (1)
  1. BACITRACIN OPHTHALMIC USP 500U/G 0S4 [Suspect]
     Active Substance: BACITRACIN
     Indication: INFESTATION
     Dosage: 1/4 INCH ON EYELASH, QD AT BEDTIME
     Route: 047
     Dates: start: 20150731, end: 20150804

REACTIONS (4)
  - Dry eye [Recovered/Resolved]
  - Off label use [Recovered/Resolved]
  - Lacrimation increased [Recovered/Resolved]
  - Rhinorrhoea [Recovered/Resolved]

NARRATIVE: CASE EVENT DATE: 20150731
